FAERS Safety Report 15695997 (Version 2)
Quarter: 2022Q2

REPORT INFORMATION
  Report Type: Spontaneous
  Country: JP (occurrence: JP)
  Receive Date: 20181206
  Receipt Date: 20220623
  Transmission Date: 20220721
  Serious: Yes (Life-Threatening, Hospitalization, Other)
  Sender: FDA-Public Use
  Company Number: JP-TEVA-2018-JP-982753

PATIENT
  Age: 45 Year
  Sex: Male

DRUGS (2)
  1. VERAPAMIL [Suspect]
     Active Substance: VERAPAMIL HYDROCHLORIDE
     Indication: Atrial fibrillation
     Route: 065
  2. PILSICAINIDE [Concomitant]
     Active Substance: PILSICAINIDE
     Indication: Atrial fibrillation
     Route: 065

REACTIONS (5)
  - Electrocardiogram J wave increased [Recovering/Resolving]
  - Cardio-respiratory arrest [Recovering/Resolving]
  - Condition aggravated [Recovering/Resolving]
  - Ventricular fibrillation [Recovering/Resolving]
  - Electrocardiogram repolarisation abnormality [Recovering/Resolving]
